FAERS Safety Report 19803480 (Version 1)
Quarter: 2021Q3

REPORT INFORMATION
  Report Type: Report from Study
  Country: GB (occurrence: GB)
  Receive Date: 20210908
  Receipt Date: 20210908
  Transmission Date: 20211014
  Serious: Yes (Hospitalization, Other)
  Sender: FDA-Public Use
  Company Number: GB-ACCORD-237662

PATIENT
  Sex: Female

DRUGS (2)
  1. SOLIRIS [Suspect]
     Active Substance: ECULIZUMAB
     Indication: PRODUCT USED FOR UNKNOWN INDICATION
     Dosage: 900 MG, Q2W
     Route: 042
     Dates: start: 20200807
  2. APIXABAN [Suspect]
     Active Substance: APIXABAN
     Indication: PRODUCT USED FOR UNKNOWN INDICATION
     Route: 065

REACTIONS (15)
  - Headache [Unknown]
  - Platelet count decreased [Not Recovered/Not Resolved]
  - Catheter site pain [Unknown]
  - Urinary tract infection [Unknown]
  - Poor venous access [Unknown]
  - Furuncle [Not Recovered/Not Resolved]
  - Body temperature increased [Unknown]
  - Ear pain [Unknown]
  - Heart rate increased [Unknown]
  - Insomnia [Not Recovered/Not Resolved]
  - Fatigue [Not Recovered/Not Resolved]
  - Ear infection [Unknown]
  - Contusion [Not Recovered/Not Resolved]
  - Abscess [Not Recovered/Not Resolved]
  - Sinusitis [Unknown]
